FAERS Safety Report 13892030 (Version 1)
Quarter: 2017Q3

REPORT INFORMATION
  Report Type: Spontaneous
  Country: US (occurrence: US)
  Receive Date: 20170822
  Receipt Date: 20170822
  Transmission Date: 20171127
  Serious: No
  Sender: FDA-Public Use
  Company Number: US-ENDO PHARMACEUTICALS INC-2016-005662

PATIENT
  Sex: Male
  Weight: 108.96 kg

DRUGS (7)
  1. TESTOPEL [Suspect]
     Active Substance: TESTOSTERONE
     Dosage: INSERT 14 AMPULES IN LEFT HIP EVERY FOUR TO FIVE MONTHS
     Route: 065
  2. ALEVE [Concomitant]
     Active Substance: NAPROXEN SODIUM
     Indication: ARTHRALGIA
  3. TESTOPEL [Suspect]
     Active Substance: TESTOSTERONE
     Dosage: INSERT 16 AMPULES IN LEFT HIP EVERY FOUR TO FIVE MONTHS
     Route: 065
  4. LIPITOR [Concomitant]
     Active Substance: ATORVASTATIN CALCIUM
     Indication: BLOOD CHOLESTEROL ABNORMAL
  5. ALEVE [Concomitant]
     Active Substance: NAPROXEN SODIUM
     Indication: ARTHRITIS
  6. TESTOPEL [Suspect]
     Active Substance: TESTOSTERONE
     Dosage: INSERT 14 AMPULES IN LEFT HIP EVERY FOUR TO FIVE MONTHS
     Route: 065
     Dates: start: 20160808
  7. TESTOPEL [Suspect]
     Active Substance: TESTOSTERONE
     Indication: BLOOD TESTOSTERONE DECREASED
     Dosage: INSERT 14 AMPULES IN LEFT HIP EVERY FOUR TO FIVE MONTHS
     Route: 065
     Dates: start: 2013

REACTIONS (3)
  - Prescribed overdose [Not Recovered/Not Resolved]
  - Feeling abnormal [Unknown]
  - Blood testosterone decreased [Recovered/Resolved]

NARRATIVE: CASE EVENT DATE: 2013
